FAERS Safety Report 10037467 (Version 1)
Quarter: 2014Q1

REPORT INFORMATION
  Report Type: Other
  Country: GB (occurrence: GB)
  Receive Date: 20140326
  Receipt Date: 20140326
  Transmission Date: 20141002
  Serious: Yes (Other)
  Sender: FDA-Public Use
  Company Number: GB-PERRIGO-14GB002907

PATIENT
  Sex: 0

DRUGS (1)
  1. DEXSOL 0.4MG/ML PL00427/0137 [Suspect]
     Indication: POLYMYALGIA RHEUMATICA
     Dosage: 4 MG, UNK
     Route: 048

REACTIONS (2)
  - Swelling face [Recovered/Resolved]
  - Rash [Recovered/Resolved]
